FAERS Safety Report 4707022-1 (Version None)
Quarter: 2005Q3

REPORT INFORMATION
  Report Type: 
  Country: None (occurrence: None)
  Receive Date: 20050701
  Receipt Date: 20050701
  Transmission Date: 20060218
  Serious: Yes (Disabling)
  Sender: FDA-Public Use
  Company Number: None

PATIENT
  Sex: Male
  Weight: 83.0083 kg

DRUGS (1)
  1. VIAGRA [Suspect]
     Indication: ERECTILE DYSFUNCTION
     Dates: start: 20010801, end: 20030501

REACTIONS (7)
  - BLINDNESS [None]
  - DRUG TOXICITY [None]
  - LUNG NEOPLASM [None]
  - OPTIC NEUROPATHY [None]
  - PARANEOPLASTIC SYNDROME [None]
  - VISUAL ACUITY REDUCED [None]
  - VITREOUS FLOATERS [None]
